FAERS Safety Report 20339971 (Version 1)
Quarter: 2022Q1

REPORT INFORMATION
  Report Type: Spontaneous
  Country: US (occurrence: None)
  Receive Date: 20220117
  Receipt Date: 20220117
  Transmission Date: 20220423
  Serious: No
  Sender: FDA-Public Use
  Company Number: 2022A018505

PATIENT
  Age: 28232 Day
  Sex: Male
  Weight: 104.3 kg

DRUGS (1)
  1. FASENRA [Suspect]
     Active Substance: BENRALIZUMAB
     Indication: Asthma
     Dosage: 30 MG/ML, EVERY 4 WEEKS FOR THE FIRST THE INJECTIONS THEN EVERY 8 WEEKS THEREAFTER.
     Route: 058
     Dates: start: 20220103

REACTIONS (1)
  - Chills [Recovered/Resolved]

NARRATIVE: CASE EVENT DATE: 20220103
